FAERS Safety Report 23303365 (Version 1)
Quarter: 2023Q4

REPORT INFORMATION
  Report Type: Spontaneous
  Country: US (occurrence: None)
  Receive Date: 20231215
  Receipt Date: 20231215
  Transmission Date: 20240110
  Serious: Yes (Death, Hospitalization)
  Sender: FDA-Public Use
  Company Number: 2023A285232

PATIENT
  Age: 69 Year
  Sex: Female

DRUGS (6)
  1. QUETIAPINE [Suspect]
     Active Substance: QUETIAPINE
     Route: 048
  2. VERAPAMIL [Suspect]
     Active Substance: VERAPAMIL HYDROCHLORIDE
  3. GABAPENTIN [Suspect]
     Active Substance: GABAPENTIN
  4. INDOMETHACIN [Suspect]
     Active Substance: INDOMETHACIN
  5. HYDROCHLOROTHIAZIDE [Suspect]
     Active Substance: HYDROCHLOROTHIAZIDE
  6. DULOXETINE [Suspect]
     Active Substance: DULOXETINE

REACTIONS (2)
  - Toxicity to various agents [Fatal]
  - Completed suicide [Fatal]
